FAERS Safety Report 5407825-4 (Version None)
Quarter: 2007Q3

REPORT INFORMATION
  Report Type: 
  Country: None (occurrence: None)
  Receive Date: 20070803
  Receipt Date: 20070724
  Transmission Date: 20080115
  Serious: Yes (Hospitalization)
  Sender: FDA-Public Use
  Company Number: 235714K07USA

PATIENT
  Age: 36 Year
  Sex: Male

DRUGS (7)
  1. REBIF [Suspect]
     Indication: MULTIPLE SCLEROSIS
     Dosage: 44 MCG, 3 IN 1 WEEKS, SUBCUTANEOUS
     Route: 058
     Dates: start: 20040719, end: 20061201
  2. TOPROL-XL [Concomitant]
  3. ENALAPRIL (ENALAPRIL /00574901/) [Concomitant]
  4. ENDOCET (OXYCOCET) [Concomitant]
  5. NEURONTIN [Concomitant]
  6. DETROL [Concomitant]
  7. CAMPRAL [Concomitant]

REACTIONS (2)
  - MULTIPLE SCLEROSIS RELAPSE [None]
  - SKIN ULCER [None]
